FAERS Safety Report 17822706 (Version 6)
Quarter: 2020Q3

REPORT INFORMATION
  Report Type: Spontaneous
  Country: IT (occurrence: IT)
  Receive Date: 20200526
  Receipt Date: 20200717
  Transmission Date: 20201102
  Serious: Yes (Hospitalization, Other)
  Sender: FDA-Public Use
  Company Number: IT-009507513-2005ITA008031

PATIENT
  Age: 63 Year
  Sex: Female
  Weight: 52 kg

DRUGS (3)
  1. PEMBROLIZUMAB. [Suspect]
     Active Substance: PEMBROLIZUMAB
     Indication: LUNG ADENOCARCINOMA STAGE IV
     Dosage: 600 MILLIGRAM, QD
     Route: 042
     Dates: start: 20200323, end: 20200506
  2. PEMBROLIZUMAB. [Suspect]
     Active Substance: PEMBROLIZUMAB
     Dosage: 600 MILLIGRAM, QD
  3. PEMBROLIZUMAB. [Suspect]
     Active Substance: PEMBROLIZUMAB
     Dosage: 600 MILLIGRAM, QD
     Dates: start: 20200506, end: 20200506

REACTIONS (6)
  - Demyelination [Not Recovered/Not Resolved]
  - Polyneuropathy [Unknown]
  - Autoimmune encephalopathy [Not Recovered/Not Resolved]
  - Gait disturbance [Unknown]
  - Nervous system disorder [Unknown]
  - Epilepsy [Unknown]

NARRATIVE: CASE EVENT DATE: 2020
